FAERS Safety Report 8582842-4 (Version None)
Quarter: 2012Q3

REPORT INFORMATION
  Report Type: 
  Country: None (occurrence: None)
  Receive Date: 20120809
  Receipt Date: 20120726
  Transmission Date: 20120928
  Serious: Yes (Death, Life-Threatening, Other)
  Sender: FDA-Public Use
  Company Number: JP-ROCHE-663713

PATIENT
  Sex: Male
  Weight: 60 kg

DRUGS (8)
  1. CYTARABINE [Concomitant]
     Dates: start: 20081012, end: 20081014
  2. VESANOID [Suspect]
     Indication: MYELODYSPLASTIC SYNDROME
     Route: 048
     Dates: start: 20081009, end: 20081011
  3. FRAGMIN [Concomitant]
     Route: 042
     Dates: start: 20081010, end: 20081101
  4. HEPARIN CALCIUM [Concomitant]
     Indication: DISSEMINATED INTRAVASCULAR COAGULATION
  5. MAXIPIME [Concomitant]
     Route: 042
     Dates: start: 20081010
  6. VESANOID [Suspect]
     Route: 048
     Dates: start: 20081014, end: 20081110
  7. IDAMYCIN [Concomitant]
     Route: 042
     Dates: start: 20081012, end: 20081013
  8. ITRACONAZOLE [Concomitant]
     Route: 048
     Dates: start: 20081010

REACTIONS (3)
  - ACUTE PROMYELOCYTIC LEUKAEMIA [None]
  - RETINOIC ACID SYNDROME [None]
  - PULMONARY CONGESTION [None]
